FAERS Safety Report 5764400-X (Version None)
Quarter: 2008Q2

REPORT INFORMATION
  Report Type: 
  Country: None (occurrence: None)
  Receive Date: 20080605
  Receipt Date: 20080523
  Transmission Date: 20081010
  Serious: Yes (Hospitalization)
  Sender: FDA-Public Use
  Company Number: TPA2008A00800

PATIENT
  Age: 50 Year
  Sex: Female
  Weight: 110.7 kg

DRUGS (4)
  1. PIOGLITAZONE HCL [Suspect]
     Indication: TYPE 2 DIABETES MELLITUS
     Dosage: 15 MG, 1 IN 1 D, PER ORAL
     Route: 048
     Dates: start: 20070525
  2. METFORMIN HCL [Suspect]
     Indication: TYPE 2 DIABETES MELLITUS
     Dosage: 1000 MG, 1 IN 1 D, ORAL
     Route: 048
     Dates: start: 20080218
  3. BYETTA [Suspect]
     Indication: TYPE 2 DIABETES MELLITUS
     Dosage: 10 MCG, 5 MCG BEFORE BREAKFAST AND DINNER, SUBCUTANEOUS
     Route: 058
     Dates: start: 20070525
  4. EXUBERA [Suspect]
     Dosage: INHALATION
     Route: 055

REACTIONS (1)
  - PULMONARY THROMBOSIS [None]
